FAERS Safety Report 24342986 (Version 1)
Quarter: 2024Q3

REPORT INFORMATION
  Report Type: Spontaneous
  Country: US (occurrence: None)
  Receive Date: 20240919
  Receipt Date: 20240919
  Transmission Date: 20241017
  Serious: Yes (unspecified)
  Sender: Public
  Company Number: None

PATIENT
  Age: 76 Year
  Sex: Female

DRUGS (1)
  1. LENALIDOMIDE [Suspect]
     Active Substance: LENALIDOMIDE
     Indication: Plasma cell myeloma
     Dosage: 5MG  QD FOR 21 DAYS ON AND 7 DAYS OFF ?

REACTIONS (3)
  - Blister [None]
  - Pain of skin [None]
  - Pruritus [None]

NARRATIVE: CASE EVENT DATE: 20240918
